FAERS Safety Report 10240097 (Version 1)
Quarter: 2014Q2

REPORT INFORMATION
  Report Type: Spontaneous
  Country: US (occurrence: US)
  Receive Date: 20140617
  Receipt Date: 20140617
  Transmission Date: 20141212
  Serious: Yes (Hospitalization)
  Sender: FDA-Public Use
  Company Number: US-UCBSA-2014001139

PATIENT
  Sex: Male

DRUGS (2)
  1. VIMPAT [Suspect]
     Indication: CONVULSION
     Dosage: 150 MG, 2X/DAY (BID)
  2. KEPPRA [Suspect]
     Indication: CONVULSION
     Dosage: 500 MG, 6X/DAY

REACTIONS (2)
  - Brain injury [Unknown]
  - Brain neoplasm [Unknown]
